FAERS Safety Report 7841761-9 (Version None)
Quarter: 2011Q4

REPORT INFORMATION
  Report Type: 
  Country: None (occurrence: None)
  Receive Date: 20111024
  Receipt Date: 20111024
  Transmission Date: 20120403
  Serious: Yes (Disabling, Other)
  Sender: FDA-Public Use
  Company Number: None

PATIENT
  Sex: Female
  Weight: 63.5036 kg

DRUGS (1)
  1. LEVOTHYROXINE SODIUM [Suspect]
     Indication: PHARYNGEAL NEOPLASM
     Dosage: 100 MG DAILY ORALLY
     Route: 048
     Dates: start: 20110416, end: 20110516

REACTIONS (7)
  - PAIN IN EXTREMITY [None]
  - MUSCULOSKELETAL PAIN [None]
  - JOINT CREPITATION [None]
  - ARTHRALGIA [None]
  - JOINT SWELLING [None]
  - BONE PAIN [None]
  - PHARYNGEAL NEOPLASM [None]
